FAERS Safety Report 15276389 (Version 1)
Quarter: 2018Q3

REPORT INFORMATION
  Report Type: Spontaneous
  Country: IE (occurrence: IE)
  Receive Date: 20180814
  Receipt Date: 20180814
  Transmission Date: 20181010
  Serious: Yes (Death, Other)
  Sender: FDA-Public Use
  Company Number: IE-009507513-1808IRL005797

PATIENT
  Age: 50 Year
  Sex: Male

DRUGS (6)
  1. PREDNISOLONE. [Concomitant]
     Active Substance: PREDNISOLONE
     Indication: IMMUNOSUPPRESSION
     Dosage: 40 MG, QD
  2. TACROLIMUS. [Concomitant]
     Active Substance: TACROLIMUS
     Dosage: 0.2 MG, QD
     Route: 048
  3. POSACONAZOLE [Suspect]
     Active Substance: POSACONAZOLE
     Indication: PROPHYLAXIS
     Dosage: 200 MG, Q8H
     Route: 042
  4. VALACYCLOVIR HYDROCHLORIDE. [Concomitant]
     Active Substance: VALACYCLOVIR HYDROCHLORIDE
     Indication: PROPHYLAXIS
     Dosage: UNK
  5. PENICILLIN V [Concomitant]
     Active Substance: PENICILLIN V
     Indication: PROPHYLAXIS
  6. OSELTAMIVIR [Concomitant]
     Active Substance: OSELTAMIVIR
     Indication: INFLUENZA

REACTIONS (1)
  - Pathogen resistance [Fatal]
